FAERS Safety Report 8846174 (Version 1)
Quarter: 2012Q4

REPORT INFORMATION
  Report Type: 
  Country: TR (occurrence: TR)
  Receive Date: 20121017
  Receipt Date: 20121017
  Transmission Date: 20130627
  Serious: Yes (Death, Hospitalization)
  Sender: FDA-Public Use
  Company Number: TR-ACTELION-A-CH2012-72817

PATIENT
  Age: 28 Year
  Sex: Female

DRUGS (6)
  1. TRACLEER [Suspect]
     Indication: PULMONARY ARTERIAL HYPERTENSION
     Dosage: 125 mg, UNK
     Route: 048
  2. TRACLEER [Suspect]
     Dosage: 62.5 mg, UNK
     Route: 048
  3. VENTAVIS BAYER SCHERING [Suspect]
     Indication: PULMONARY ARTERIAL HYPERTENSION
     Dosage: UNK, q4hrs
     Route: 055
  4. VENTOLIN [Concomitant]
  5. REVATIO [Concomitant]
     Dosage: 20 mg, UNK
  6. COMBIVENT [Concomitant]

REACTIONS (4)
  - Pneumonia [Fatal]
  - Respiratory failure [Fatal]
  - Pulmonary arterial hypertension [Fatal]
  - Condition aggravated [Fatal]
